APPROVED DRUG PRODUCT: COLCHICINE
Active Ingredient: COLCHICINE
Strength: 0.6MG
Dosage Form/Route: TABLET;ORAL
Application: A203976 | Product #001 | TE Code: AB
Applicant: PH HEALTH LTD
Approved: Aug 12, 2021 | RLD: No | RS: Yes | Type: RX